FAERS Safety Report 7029405-X (Version None)
Quarter: 2010Q4

REPORT INFORMATION
  Report Type: 
  Country: None (occurrence: None)
  Receive Date: 20101005
  Receipt Date: 20100929
  Transmission Date: 20110411
  Serious: Yes (Death)
  Sender: FDA-Public Use
  Company Number: PHHY2010CA48370

PATIENT
  Sex: Female

DRUGS (2)
  1. ZOMETA [Suspect]
     Indication: BREAST CANCER
     Dosage: 4 MG EVERY 4 WEEKS
     Route: 042
     Dates: start: 20080930
  2. CHEMOTHERAPEUTICS NOS [Concomitant]
     Dosage: UNK
     Dates: end: 20100811

REACTIONS (3)
  - DEATH [None]
  - HEPATIC ENZYME INCREASED [None]
  - MALAISE [None]
